FAERS Safety Report 8457771-7 (Version None)
Quarter: 2012Q2

REPORT INFORMATION
  Report Type: 
  Country: None (occurrence: None)
  Receive Date: 20120618
  Receipt Date: 20120618
  Transmission Date: 20120825
  Serious: Yes (Hospitalization)
  Sender: FDA-Public Use
  Company Number: None

PATIENT
  Sex: Female
  Weight: 78.5 kg

DRUGS (1)
  1. TAXOL [Suspect]
     Dosage: 145 MG
     Dates: end: 20110316

REACTIONS (1)
  - EJECTION FRACTION DECREASED [None]
